FAERS Safety Report 14248885 (Version 1)
Quarter: 2017Q4

REPORT INFORMATION
  Report Type: Spontaneous
  Country: CN (occurrence: CN)
  Receive Date: 20171204
  Receipt Date: 20171204
  Transmission Date: 20180321
  Serious: Yes (Other)
  Sender: FDA-Public Use
  Company Number: CN-PFIZER INC-2017513421

PATIENT
  Age: 56 Year
  Sex: Female
  Weight: 57 kg

DRUGS (3)
  1. LIPITOR [Suspect]
     Active Substance: ATORVASTATIN CALCIUM
     Indication: HYPERLIPIDAEMIA
     Dosage: 10 MG, 1X/DAY
     Route: 048
     Dates: start: 20170814, end: 20170821
  2. KA SI PING [Concomitant]
     Indication: HYPERGLYCAEMIA
     Dosage: 45 MG, 1X/DAY
     Route: 048
     Dates: start: 20170814, end: 20170925
  3. BETALOC /00376902/ [Concomitant]
     Active Substance: METOPROLOL TARTRATE
     Indication: HYPERTENSION
     Dosage: 11.875 MG, 1X/DAY
     Route: 048
     Dates: start: 20170814, end: 20170925

REACTIONS (1)
  - Hepatic pain [Recovering/Resolving]

NARRATIVE: CASE EVENT DATE: 20170817
